FAERS Safety Report 11323982 (Version 2)
Quarter: 2015Q3

REPORT INFORMATION
  Report Type: Spontaneous
  Country: IT (occurrence: IT)
  Receive Date: 20150730
  Receipt Date: 20150804
  Transmission Date: 20151125
  Serious: Yes (Other)
  Sender: FDA-Public Use
  Company Number: IT-PFIZER INC-2015249997

PATIENT
  Age: 43 Year
  Sex: Female

DRUGS (2)
  1. TAZOCIN [Suspect]
     Active Substance: PIPERACILLIN SODIUM\TAZOBACTAM SODIUM
     Indication: LYMPHADENOPATHY
     Dosage: 1 DF, TOTAL
     Route: 030
     Dates: start: 20150508, end: 20150508
  2. CIPROXIN [Concomitant]
     Active Substance: CIPROFLOXACIN
     Indication: CYSTITIS

REACTIONS (4)
  - Dysphagia [Recovering/Resolving]
  - Erythema [Recovering/Resolving]
  - Diarrhoea [Recovering/Resolving]
  - Tremor [Recovering/Resolving]

NARRATIVE: CASE EVENT DATE: 20150508
